FAERS Safety Report 23243073 (Version 2)
Quarter: 2025Q3

REPORT INFORMATION
  Report Type: Report from Study
  Country: BR (occurrence: BR)
  Receive Date: 20231130
  Receipt Date: 20250715
  Transmission Date: 20251020
  Serious: Yes (Other)
  Sender: EMD SERONO INC
  Company Number: BR-Merck Healthcare KGaA-9336856

PATIENT
  Age: 25 Year
  Sex: Female

DRUGS (2)
  1. INTERFERON BETA-1A [Suspect]
     Active Substance: INTERFERON BETA-1A
     Indication: Multiple sclerosis
     Dates: start: 20190722, end: 202204
  2. FERROUS SULFATE [Concomitant]
     Active Substance: FERROUS SULFATE
     Indication: Product used for unknown indication

REACTIONS (9)
  - Complication of pregnancy [Recovered/Resolved]
  - Uterine cyst [Unknown]
  - Fatigue [Unknown]
  - Lactation insufficiency [Recovered/Resolved]
  - Menstruation irregular [Unknown]
  - Stress [Unknown]
  - Live birth [Recovered/Resolved]
  - Breast feeding [Not Recovered/Not Resolved]
  - Maternal exposure during pregnancy [Recovered/Resolved]

NARRATIVE: CASE EVENT DATE: 20211101
